FAERS Safety Report 8056200-5 (Version None)
Quarter: 2012Q1

REPORT INFORMATION
  Report Type: 
  Country: None (occurrence: None)
  Receive Date: 20120119
  Receipt Date: 20120113
  Transmission Date: 20120608
  Serious: Yes (Death, Hospitalization)
  Sender: FDA-Public Use
  Company Number: US-BAXTER-2011BH036664

PATIENT
  Sex: Female

DRUGS (1)
  1. DIANEAL [Suspect]
     Indication: PERITONEAL DIALYSIS
     Route: 033
     Dates: end: 20111101

REACTIONS (4)
  - DEATH [None]
  - PERITONITIS BACTERIAL [None]
  - GASTROINTESTINAL HAEMORRHAGE [None]
  - FLUID OVERLOAD [None]
